FAERS Safety Report 8073390-9 (Version None)
Quarter: 2012Q1

REPORT INFORMATION
  Report Type: 
  Country: None (occurrence: None)
  Receive Date: 20120126
  Receipt Date: 20120118
  Transmission Date: 20120608
  Serious: Yes (Hospitalization, Disabling)
  Sender: FDA-Public Use
  Company Number: US-BAYER-2011-033800

PATIENT
  Age: 22 Year
  Sex: Female
  Weight: 70.295 kg

DRUGS (14)
  1. YASMIN [Suspect]
     Indication: PREMENSTRUAL SYNDROME
     Dosage: UNK
     Dates: start: 20070101, end: 20090101
  2. LAMICTAL [Concomitant]
     Dosage: UNK
     Dates: start: 20090101
  3. PROPRANOLOL [Concomitant]
     Indication: ANXIETY
  4. LESSINA [Concomitant]
     Dosage: UNK
     Dates: start: 20090101
  5. TEGRETOL [Concomitant]
     Dosage: UNK
     Dates: start: 20090101
  6. ATIVAN [Concomitant]
  7. XANAX [Concomitant]
     Indication: ANXIETY
     Dosage: 0.5 2X
     Dates: start: 20090101
  8. TOPIRAMATE [Concomitant]
     Dosage: UNK
     Dates: start: 20090101
  9. TRILEPTAL [Concomitant]
     Dosage: UNK
     Dates: start: 20090101
  10. CONCERTA [Concomitant]
  11. WELLBUTRIN [Concomitant]
     Indication: DEPRESSION
     Dosage: 200 MG, QD
     Dates: start: 20090202
  12. KEPPRA [Concomitant]
     Dosage: UNK
     Dates: start: 20090101
  13. ALBUTEROL [Concomitant]
     Dosage: UNK
     Dates: start: 20080101, end: 20090101
  14. COGENTIN [Concomitant]
     Indication: ANXIETY

REACTIONS (11)
  - ANHEDONIA [None]
  - LEARNING DISORDER [None]
  - CARDIAC ARREST [None]
  - MENTAL DISORDER [None]
  - AMNESIA [None]
  - PAIN [None]
  - GRAND MAL CONVULSION [None]
  - APHASIA [None]
  - INJURY [None]
  - ANXIETY [None]
  - SLEEP PARALYSIS [None]
